FAERS Safety Report 4634376-7 (Version None)
Quarter: 2005Q2

REPORT INFORMATION
  Report Type: 
  Country: None (occurrence: None)
  Receive Date: 20050411
  Receipt Date: 20050329
  Transmission Date: 20051028
  Serious: Yes (Other)
  Sender: FDA-Public Use
  Company Number: 2005051546

PATIENT
  Age: 83 Year
  Sex: Female

DRUGS (2)
  1. CELECOXIB (CELECOXIB) [Suspect]
     Indication: ILL-DEFINED DISORDER
  2. ROFECOXIB [Suspect]
     Indication: ILL-DEFINED DISORDER

REACTIONS (3)
  - GENERAL PHYSICAL CONDITION ABNORMAL [None]
  - RENAL FAILURE ACUTE [None]
  - TUBULOINTERSTITIAL NEPHRITIS [None]
